FAERS Safety Report 19162495 (Version 2)
Quarter: 2021Q3

REPORT INFORMATION
  Report Type: Report from Study
  Country: US (occurrence: US)
  Receive Date: 20210421
  Receipt Date: 20210921
  Transmission Date: 20211014
  Serious: Yes (Other)
  Sender: FDA-Public Use
  Company Number: US-ALNYLAM PHARMACEUTICALS, INC.-ALN-2021-000895

PATIENT

DRUGS (1)
  1. ONPATTRO [Suspect]
     Active Substance: PATISIRAN SODIUM
     Indication: HEREDITARY NEUROPATHIC AMYLOIDOSIS
     Route: 042

REACTIONS (7)
  - Insomnia [Unknown]
  - Depression [Unknown]
  - Blindness [Not Recovered/Not Resolved]
  - Anxiety [Unknown]
  - Logorrhoea [Unknown]
  - Cardiac amyloidosis [Unknown]
  - Nausea [Unknown]

NARRATIVE: CASE EVENT DATE: 20210309
